FAERS Safety Report 21706211 (Version 1)
Quarter: 2022Q4

REPORT INFORMATION
  Report Type: Spontaneous
  Country: US (occurrence: None)
  Receive Date: 20221208
  Receipt Date: 20221208
  Transmission Date: 20230113
  Serious: Yes (Death)
  Sender: FDA-Public Use
  Company Number: None

PATIENT
  Sex: Female

DRUGS (2)
  1. DROXIDOPA [Suspect]
     Active Substance: DROXIDOPA
     Indication: Autonomic neuropathy
     Dosage: FREQUENCY : DAILY;?
     Route: 048
     Dates: start: 20210330
  2. NORTHERA [Concomitant]
     Active Substance: DROXIDOPA

REACTIONS (1)
  - Death [None]
